FAERS Safety Report 9604100 (Version 1)
Quarter: 2013Q4

REPORT INFORMATION
  Report Type: Spontaneous
  Country: FR (occurrence: FR)
  Receive Date: 20131008
  Receipt Date: 20131008
  Transmission Date: 20140711
  Serious: Yes (Hospitalization, Other)
  Sender: FDA-Public Use
  Company Number: FR-MERCK-1310FRA000928

PATIENT
  Age: 69 Year
  Sex: Female

DRUGS (3)
  1. VICTRELIS [Suspect]
     Indication: HEPATITIS C VIRUS TEST POSITIVE
     Dosage: 4 DF, TID
     Route: 048
     Dates: start: 201306
  2. VIRAFERONPEG [Suspect]
     Indication: HEPATITIS C
     Dosage: 0.45 ML, QW
     Dates: start: 201304
  3. RIBAVIRIN [Suspect]
     Indication: HEPATITIS C VIRUS TEST POSITIVE
     Dosage: 5 DF, QD
     Route: 048

REACTIONS (1)
  - Pulmonary embolism [Recovering/Resolving]
